FAERS Safety Report 14603119 (Version 1)
Quarter: 2018Q1

REPORT INFORMATION
  Report Type: Spontaneous
  Country: US (occurrence: US)
  Receive Date: 20180306
  Receipt Date: 20180306
  Transmission Date: 20180509
  Serious: Yes (Other)
  Sender: FDA-Public Use
  Company Number: US-009507513-1802USA013597

PATIENT
  Age: 43 Year
  Sex: Male

DRUGS (6)
  1. SODIUM CHLORIDE. [Concomitant]
     Active Substance: SODIUM CHLORIDE
     Indication: HYPONATRAEMIA
     Dosage: UNK
  2. DEXTROSE. [Concomitant]
     Active Substance: DEXTROSE
     Indication: HYPOGLYCAEMIA
     Dosage: UNK, FREQUENT ADMINISTRATION
     Route: 042
  3. HYDROCORTONE [Suspect]
     Active Substance: HYDROCORTISONE
     Dosage: 25 MG DAILY OF PREDNISONE EQUIVALENT
     Route: 048
  4. SODIUM CHLORIDE. [Concomitant]
     Active Substance: SODIUM CHLORIDE
     Indication: HYPOTENSION
  5. SODIUM CHLORIDE. [Concomitant]
     Active Substance: SODIUM CHLORIDE
     Indication: FLUID REPLACEMENT
  6. HYDROCORTONE [Suspect]
     Active Substance: HYDROCORTISONE
     Indication: SECONDARY ADRENOCORTICAL INSUFFICIENCY
     Dosage: 75 MG DAILY OF PREDNISONE EQUIVALENT (HIGH-DOSE)
     Route: 048

REACTIONS (1)
  - Psychotic symptom [Recovering/Resolving]
